FAERS Safety Report 19466405 (Version 2)
Quarter: 2021Q3

REPORT INFORMATION
  Report Type: Spontaneous
  Country: US (occurrence: US)
  Receive Date: 20210628
  Receipt Date: 20210805
  Transmission Date: 20211014
  Serious: No
  Sender: FDA-Public Use
  Company Number: US-ASTRAZENECA-2021A492671

PATIENT
  Age: 832 Month
  Sex: Female
  Weight: 63.5 kg

DRUGS (2)
  1. BREZTRI AEROSPHERE [Suspect]
     Active Substance: BUDESONIDE\FORMOTEROL\GLYCOPYRRONIUM
     Indication: EMPHYSEMA
     Dosage: 160/7.2/5.0MCG 2 PUFFS IN AM AND 2 PUFFS IN AFTERNOON BY INHALATION
     Route: 055
     Dates: start: 202104
  2. BREZTRI AEROSPHERE [Suspect]
     Active Substance: BUDESONIDE\FORMOTEROL\GLYCOPYRRONIUM
     Indication: CHRONIC OBSTRUCTIVE PULMONARY DISEASE
     Dosage: 160/7.2/5.0MCG 2 PUFFS IN AM AND 2 PUFFS IN AFTERNOON BY INHALATION
     Route: 055
     Dates: start: 202104

REACTIONS (4)
  - Dyspnoea [Recovering/Resolving]
  - Gait disturbance [Recovering/Resolving]
  - Drug ineffective [Recovering/Resolving]
  - Device delivery system issue [Recovering/Resolving]

NARRATIVE: CASE EVENT DATE: 202105
